FAERS Safety Report 8729327 (Version 2)
Quarter: 2013Q3

REPORT INFORMATION
  Report Type: Spontaneous
  Country: US (occurrence: US)
  Receive Date: 20120817
  Receipt Date: 20130823
  Transmission Date: 20140515
  Serious: No
  Sender: FDA-Public Use
  Company Number: US-BRISTOL-MYERS SQUIBB COMPANY-16702920

PATIENT
  Age: 37 Year
  Sex: Female

DRUGS (6)
  1. SPRYCEL [Suspect]
     Indication: BREAST CANCER METASTATIC
     Route: 048
     Dates: start: 20120619, end: 20120627
  2. AVASTIN [Suspect]
  3. XELODA [Suspect]
     Indication: BREAST CANCER
     Route: 048
     Dates: start: 20120306
  4. VOTRIENT [Suspect]
     Indication: BREAST CANCER
     Route: 048
     Dates: start: 20120308
  5. SODIUM PHENYLBUTYRATE [Suspect]
     Indication: BREAST CANCER
     Route: 048
     Dates: start: 20120308
  6. BENADRYL [Concomitant]

REACTIONS (3)
  - Headache [Recovering/Resolving]
  - Fatigue [Recovering/Resolving]
  - Bone pain [Unknown]
